FAERS Safety Report 15880614 (Version 1)
Quarter: 2019Q1

REPORT INFORMATION
  Report Type: Spontaneous
  Country: FR (occurrence: FR)
  Receive Date: 20190128
  Receipt Date: 20190128
  Transmission Date: 20190417
  Serious: Yes (Hospitalization)
  Sender: FDA-Public Use
  Company Number: FR-TEVA-2019-FR-1002987

PATIENT
  Age: 88 Year
  Sex: Female

DRUGS (2)
  1. AMOXICILLINE [Suspect]
     Active Substance: AMOXICILLIN
     Indication: URINARY TRACT INFECTION
     Dosage: UNKNOWN
     Route: 048
     Dates: start: 20181206, end: 20181212
  2. CEFTRIAXONE SODIQUE [Suspect]
     Active Substance: CEFTRIAXONE SODIUM
     Indication: URINARY TRACT INFECTION
     Dosage: UNKNOWN
     Route: 058
     Dates: start: 20181203, end: 20181205

REACTIONS (1)
  - Overlap syndrome [Recovering/Resolving]

NARRATIVE: CASE EVENT DATE: 20181212
